FAERS Safety Report 16284879 (Version 2)
Quarter: 2020Q4

REPORT INFORMATION
  Report Type: Spontaneous
  Country: US (occurrence: US)
  Receive Date: 20190508
  Receipt Date: 20201028
  Transmission Date: 20210113
  Serious: Yes (Other)
  Sender: FDA-Public Use
  Company Number: US-ASTRAZENECA-2019SE60071

PATIENT
  Age: 78 Year
  Sex: Female
  Weight: 72.6 kg

DRUGS (25)
  1. RANITIDINE. [Concomitant]
     Active Substance: RANITIDINE
  2. METOPROLOL. [Concomitant]
     Active Substance: METOPROLOL
  3. PREMARIN [Concomitant]
     Active Substance: ESTROGENS, CONJUGATED
  4. PRILOSEC OTC [Suspect]
     Active Substance: OMEPRAZOLE MAGNESIUM
     Indication: GASTROOESOPHAGEAL REFLUX DISEASE
     Route: 048
     Dates: start: 20040825, end: 20090115
  5. BENAZEPRIL [Concomitant]
     Active Substance: BENAZEPRIL HYDROCHLORIDE
  6. TOPROL XL [Concomitant]
     Active Substance: METOPROLOL SUCCINATE
  7. FUROSEMIDE. [Concomitant]
     Active Substance: FUROSEMIDE
     Indication: OEDEMA
  8. AZITHROMYCIN ANHYDROUS. [Concomitant]
     Active Substance: AZITHROMYCIN ANHYDROUS
  9. LISINOPRIL. [Concomitant]
     Active Substance: LISINOPRIL
     Indication: BLOOD PRESSURE MEASUREMENT
  10. CALCIUM [Concomitant]
     Active Substance: CALCIUM
     Indication: NUTRITIONAL SUPPLEMENTATION
  11. TUMS [Concomitant]
     Active Substance: CALCIUM CARBONATE
  12. DETROL [Concomitant]
     Active Substance: TOLTERODINE TARTRATE
  13. PRILOSEC OTC [Suspect]
     Active Substance: OMEPRAZOLE MAGNESIUM
     Indication: GASTROOESOPHAGEAL REFLUX DISEASE
     Route: 048
     Dates: start: 20100531
  14. ESTRADIOL. [Concomitant]
     Active Substance: ESTRADIOL
  15. TROSPIUM [Concomitant]
     Active Substance: TROSPIUM
  16. NAPROXEN. [Concomitant]
     Active Substance: NAPROXEN
  17. WARFARIN [Concomitant]
     Active Substance: WARFARIN
  18. LOTENSIN [Concomitant]
     Active Substance: BENAZEPRIL HYDROCHLORIDE
  19. PRILOSEC OTC [Suspect]
     Active Substance: OMEPRAZOLE MAGNESIUM
     Indication: GASTROOESOPHAGEAL REFLUX DISEASE
     Route: 048
     Dates: start: 200401, end: 201706
  20. PRILOSEC [Suspect]
     Active Substance: OMEPRAZOLE MAGNESIUM
     Route: 048
  21. FAMOTIDINE. [Concomitant]
     Active Substance: FAMOTIDINE
  22. GLUCOSAMINE [Concomitant]
     Active Substance: GLUCOSAMINE
  23. PRILOSEC OTC [Suspect]
     Active Substance: OMEPRAZOLE MAGNESIUM
     Indication: GASTROOESOPHAGEAL REFLUX DISEASE
     Dosage: GENERIC
     Route: 065
     Dates: start: 20140101, end: 20170624
  24. PROAIR HFA [Concomitant]
     Active Substance: ALBUTEROL SULFATE
  25. SIMVASTATIN. [Concomitant]
     Active Substance: SIMVASTATIN

REACTIONS (1)
  - Chronic kidney disease [Not Recovered/Not Resolved]

NARRATIVE: CASE EVENT DATE: 2014
